FAERS Safety Report 15232817 (Version 1)
Quarter: 2018Q3

REPORT INFORMATION
  Report Type: Spontaneous
  Country: CA (occurrence: CA)
  Receive Date: 20180802
  Receipt Date: 20180802
  Transmission Date: 20181010
  Serious: Yes (Hospitalization, Other)
  Sender: FDA-Public Use
  Company Number: CA-REGENERON PHARMACEUTICALS, INC.-2018-26072

PATIENT

DRUGS (5)
  1. APIXABAN [Concomitant]
     Active Substance: APIXABAN
     Indication: PRODUCT USED FOR UNKNOWN INDICATION
     Route: 048
  2. EYLEA [Suspect]
     Active Substance: AFLIBERCEPT
     Dosage: FIRST DOSE POST CVA ( EVENT)
     Dates: start: 20180606, end: 20180606
  3. HEPARIN [Concomitant]
     Active Substance: HEPARIN SODIUM
     Indication: PRODUCT USED FOR UNKNOWN INDICATION
     Route: 042
  4. EYLEA [Suspect]
     Active Substance: AFLIBERCEPT
     Dosage: LAST DOSE BEFORE THE EVENT
     Dates: start: 20180418, end: 20180418
  5. EYLEA [Suspect]
     Active Substance: AFLIBERCEPT
     Indication: NEOVASCULAR AGE-RELATED MACULAR DEGENERATION
     Dosage: LAST DOSE PRIOR THE EVENT WAS 18?APR?2018, 36 INJECTIONS OS; 35 INJECTIONS OD
     Dates: start: 20140514

REACTIONS (4)
  - Cerebrovascular accident [Unknown]
  - Dyspnoea [Unknown]
  - Chest pain [Unknown]
  - Palpitations [Unknown]

NARRATIVE: CASE EVENT DATE: 201804
